FAERS Safety Report 23931288 (Version 1)
Quarter: 2024Q2

REPORT INFORMATION
  Report Type: Other
  Country: CA (occurrence: CA)
  Receive Date: 20240603
  Receipt Date: 20240603
  Transmission Date: 20240715
  Serious: Yes (Life-Threatening, Other)
  Sender: FDA-Public Use
  Company Number: CA-GLENMARK PHARMACEUTICALS-2024GMK091053

PATIENT

DRUGS (48)
  1. GABAPENTIN [Suspect]
     Active Substance: GABAPENTIN
     Indication: Product used for unknown indication
     Dosage: UNK
     Route: 065
  2. ACETAMINOPHEN [Suspect]
     Active Substance: ACETAMINOPHEN
     Indication: Product used for unknown indication
     Dosage: UNK
     Route: 065
  3. ALBUREX [Suspect]
     Active Substance: ALBUMIN HUMAN
     Indication: Product used for unknown indication
     Dosage: UNK
     Route: 065
  4. ALBUREX [Suspect]
     Active Substance: ALBUMIN HUMAN
     Dosage: UNK
     Route: 042
  5. ALBUREX [Suspect]
     Active Substance: ALBUMIN HUMAN
     Dosage: UNK
     Route: 042
  6. ALBUREX [Suspect]
     Active Substance: ALBUMIN HUMAN
     Dosage: UNK
     Route: 042
  7. ALBUREX [Suspect]
     Active Substance: ALBUMIN HUMAN
     Indication: Product used for unknown indication
     Dosage: UNK
     Route: 065
  8. BENADRYL [Suspect]
     Active Substance: DIPHENHYDRAMINE HYDROCHLORIDE
     Indication: Product used for unknown indication
     Dosage: UNK
     Route: 065
  9. BUDESONIDE [Suspect]
     Active Substance: BUDESONIDE
     Indication: Product used for unknown indication
     Dosage: UNK
     Route: 065
  10. CALCIUM CHLORIDE [Suspect]
     Active Substance: CALCIUM CHLORIDE
     Indication: Product used for unknown indication
     Dosage: UNK
     Route: 042
  11. CEFAZOLIN SODIUM [Suspect]
     Active Substance: CEFAZOLIN SODIUM
     Indication: Product used for unknown indication
     Route: 042
  12. CEFAZOLIN SODIUM [Suspect]
     Active Substance: CEFAZOLIN SODIUM
     Dosage: UNK
     Route: 042
  13. CEFAZOLIN SODIUM [Suspect]
     Active Substance: CEFAZOLIN SODIUM
     Dosage: UNK
     Route: 042
  14. CHLORHEXIDINE GLUCONATE [Suspect]
     Active Substance: CHLORHEXIDINE GLUCONATE
     Indication: Product used for unknown indication
     Dosage: UNK
     Route: 065
  15. DDAVP [Suspect]
     Active Substance: DESMOPRESSIN ACETATE
     Indication: Product used for unknown indication
     Dosage: UNK
     Route: 042
  16. DDAVP [Suspect]
     Active Substance: DESMOPRESSIN ACETATE
     Dosage: UNK
     Route: 065
  17. DECADRON [Suspect]
     Active Substance: DEXAMETHASONE
     Indication: Product used for unknown indication
     Dosage: UNK
     Route: 065
  18. FAMOTIDINE [Suspect]
     Active Substance: FAMOTIDINE
     Indication: Product used for unknown indication
     Dosage: UNK
     Route: 065
  19. DEVICE\GELATIN [Suspect]
     Active Substance: DEVICE\GELATIN
     Indication: Tissue sealing
     Dosage: UNK
     Route: 065
  20. DEVICE\GELATIN [Suspect]
     Active Substance: DEVICE\GELATIN
     Dosage: UNK
     Route: 065
  21. DEVICE\GELATIN [Suspect]
     Active Substance: DEVICE\GELATIN
     Dosage: UNK
     Route: 065
  22. DEVICE\GELATIN [Suspect]
     Active Substance: DEVICE\GELATIN
     Dosage: UNK
     Route: 065
  23. HYDROMORPHONE [Suspect]
     Active Substance: HYDROMORPHONE
     Indication: Product used for unknown indication
     Dosage: UNK
     Route: 065
  24. KETAMINE [Suspect]
     Active Substance: KETAMINE
     Indication: Scoliosis surgery
     Route: 065
  25. MORPHINE [Suspect]
     Active Substance: MORPHINE
     Indication: Product used for unknown indication
     Dosage: UNK
     Route: 008
  26. NAPROSYN [Suspect]
     Active Substance: NAPROXEN
     Indication: Product used for unknown indication
     Dosage: UNK
     Route: 065
  27. NOREPINEPHRINE BITARTRATE [Suspect]
     Active Substance: NOREPINEPHRINE BITARTRATE
     Indication: Product used for unknown indication
     Dosage: UNK
     Route: 065
  28. NOREPINEPHRINE BITARTRATE [Suspect]
     Active Substance: NOREPINEPHRINE BITARTRATE
     Dosage: UNK
     Route: 065
  29. NOREPINEPHRINE BITARTRATE [Suspect]
     Active Substance: NOREPINEPHRINE BITARTRATE
     Dosage: UNK
     Route: 065
  30. NOREPINEPHRINE BITARTRATE [Suspect]
     Active Substance: NOREPINEPHRINE BITARTRATE
     Dosage: UNK
     Route: 065
  31. NOREPINEPHRINE BITARTRATE [Suspect]
     Active Substance: NOREPINEPHRINE BITARTRATE
     Dosage: UNK
     Route: 065
  32. ONDANSETRON HYDROCHLORIDE [Suspect]
     Active Substance: ONDANSETRON HYDROCHLORIDE
     Indication: Product used for unknown indication
     Dosage: UNK
     Route: 065
  33. PROPOFOL [Suspect]
     Active Substance: PROPOFOL
     Indication: Scoliosis surgery
     Dosage: UNK
     Route: 065
  34. PROPOFOL [Suspect]
     Active Substance: PROPOFOL
     Dosage: UNK
     Route: 065
  35. PROPOFOL [Suspect]
     Active Substance: PROPOFOL
     Dosage: UNK
     Route: 065
  36. ROCURONIUM [Suspect]
     Active Substance: ROCURONIUM BROMIDE
     Indication: Product used for unknown indication
     Dosage: UNK
     Route: 065
  37. ROCURONIUM [Suspect]
     Active Substance: ROCURONIUM BROMIDE
     Dosage: UNK
     Route: 042
  38. SOLU-CORTEF [Suspect]
     Active Substance: HYDROCORTISONE SODIUM SUCCINATE
     Indication: Product used for unknown indication
     Dosage: UNK (FORMULATION: POWDER FOR SOLUTION)
     Route: 030
  39. SUFENTANIL [Suspect]
     Active Substance: SUFENTANIL
     Indication: Product used for unknown indication
     Dosage: UNK
     Route: 065
  40. TISSEEL [Suspect]
     Active Substance: FIBRINOGEN HUMAN\THROMBIN HUMAN
     Indication: Tissue sealing
     Dosage: UNK
     Route: 065
  41. TISSEEL [Suspect]
     Active Substance: FIBRINOGEN HUMAN\THROMBIN HUMAN
     Dosage: UNK
     Route: 065
  42. TISSEEL [Suspect]
     Active Substance: FIBRINOGEN HUMAN\THROMBIN HUMAN
     Dosage: UNK
     Route: 065
  43. TRANDATE [Suspect]
     Active Substance: LABETALOL HYDROCHLORIDE
     Indication: Product used for unknown indication
     Dosage: UNK
     Route: 065
  44. TRANEXAMIC ACID [Suspect]
     Active Substance: TRANEXAMIC ACID
     Indication: Product used for unknown indication
     Dosage: UNK
     Route: 042
  45. TRANEXAMIC ACID [Suspect]
     Active Substance: TRANEXAMIC ACID
     Dosage: UNK
     Route: 065
  46. VANCOMYCIN HYDROCHLORIDE [Suspect]
     Active Substance: VANCOMYCIN HYDROCHLORIDE
     Indication: Product used for unknown indication
     Dosage: UNK
     Route: 042
  47. VANCOMYCIN HYDROCHLORIDE [Suspect]
     Active Substance: VANCOMYCIN HYDROCHLORIDE
     Dosage: UNK
     Route: 065
  48. VENTOLIN [Suspect]
     Active Substance: ALBUTEROL SULFATE
     Indication: Product used for unknown indication
     Dosage: UNK
     Route: 065

REACTIONS (22)
  - Adverse reaction [Recovered/Resolved]
  - Anaphylactic shock [Recovered/Resolved]
  - Haemothorax [Recovered/Resolved]
  - Angiopathy [Recovered/Resolved]
  - Emphysema [Recovered/Resolved]
  - Hypovolaemia [Recovered/Resolved]
  - Inspiratory capacity decreased [Recovered/Resolved]
  - Mechanical ventilation complication [Recovered/Resolved]
  - Pleural effusion [Recovered/Resolved]
  - Pneumothorax [Recovered/Resolved]
  - Shock haemorrhagic [Recovered/Resolved]
  - Haemorrhage [Recovered/Resolved]
  - Hypotension [Recovered/Resolved]
  - Epistaxis [Recovered/Resolved]
  - Tachycardia [Recovered/Resolved]
  - Face oedema [Recovered/Resolved]
  - Blood pressure increased [Recovered/Resolved]
  - Flatulence [Recovered/Resolved]
  - Hypersensitivity [Recovered/Resolved]
  - Anaphylactic reaction [Recovered/Resolved]
  - Back pain [Recovered/Resolved]
  - Urticaria [Recovered/Resolved]
